FAERS Safety Report 25083920 (Version 1)
Quarter: 2025Q1

REPORT INFORMATION
  Report Type: Spontaneous
  Country: NZ (occurrence: NZ)
  Receive Date: 20250317
  Receipt Date: 20250317
  Transmission Date: 20250409
  Serious: Yes (Hospitalization)
  Sender: CSL BEHRING
  Company Number: NZ-BEH-2025198679

PATIENT
  Sex: Male
  Weight: 2.57 kg

DRUGS (3)
  1. HUMAN IMMUNOGLOBULIN G [Suspect]
     Active Substance: HUMAN IMMUNOGLOBULIN G
     Indication: Alloimmunisation
     Route: 064
     Dates: start: 20241114
  2. HUMAN IMMUNOGLOBULIN G [Suspect]
     Active Substance: HUMAN IMMUNOGLOBULIN G
     Route: 064
     Dates: start: 20241114
  3. HUMAN IMMUNOGLOBULIN G [Suspect]
     Active Substance: HUMAN IMMUNOGLOBULIN G
     Route: 064
     Dates: start: 20241114

REACTIONS (3)
  - Apnoea [Unknown]
  - Jaundice acholuric [Unknown]
  - Off label use [Unknown]
